FAERS Safety Report 9563383 (Version 2)
Quarter: 2013Q4

REPORT INFORMATION
  Report Type: Spontaneous
  Country: US (occurrence: US)
  Receive Date: 20130927
  Receipt Date: 20131003
  Transmission Date: 20140711
  Serious: Yes (Other)
  Sender: FDA-Public Use
  Company Number: US-GILEAD-2013-0084386

PATIENT
  Sex: Female

DRUGS (1)
  1. LETAIRIS [Suspect]
     Indication: PULMONARY ARTERIAL HYPERTENSION
     Dosage: 5 MG, UNK
     Route: 048
     Dates: start: 20091217

REACTIONS (5)
  - Neoplasm malignant [Unknown]
  - Emphysema [Unknown]
  - Atrioventricular block [Unknown]
  - Vascular occlusion [Unknown]
  - Nasopharyngitis [Unknown]
